FAERS Safety Report 24368652 (Version 1)
Quarter: 2024Q3

REPORT INFORMATION
  Report Type: Report from Study
  Country: GB (occurrence: GB)
  Receive Date: 20240926
  Receipt Date: 20240926
  Transmission Date: 20241017
  Serious: Yes (Other)
  Sender: ABBVIE
  Company Number: GB-ABBVIE-5936794

PATIENT
  Sex: Female

DRUGS (1)
  1. RINVOQ [Suspect]
     Active Substance: UPADACITINIB
     Indication: Rheumatoid arthritis
     Route: 048

REACTIONS (5)
  - Cardiac failure [Unknown]
  - Lip swelling [Unknown]
  - Fatigue [Unknown]
  - Myalgia [Unknown]
  - Bone pain [Unknown]
